FAERS Safety Report 22588904 (Version 1)
Quarter: 2023Q2

REPORT INFORMATION
  Report Type: Spontaneous
  Country: US (occurrence: US)
  Receive Date: 20230612
  Receipt Date: 20230612
  Transmission Date: 20230721
  Serious: Yes (Other)
  Sender: FDA-Public Use
  Company Number: US-MYLANLABS-2023M1060295

PATIENT
  Sex: Male

DRUGS (3)
  1. TRIAMCINOLONE [Suspect]
     Active Substance: TRIAMCINOLONE
     Indication: Choroiditis
     Dosage: UNK
     Route: 047
  2. AZATHIOPRINE [Concomitant]
     Active Substance: AZATHIOPRINE
     Indication: Dermatitis atopic
     Dosage: UNK
     Route: 065
  3. DUPILUMAB [Concomitant]
     Active Substance: DUPILUMAB
     Indication: Dermatitis atopic
     Dosage: 300 MILLIGRAM EVERY 14 DAYS
     Route: 058

REACTIONS (2)
  - Ocular hypertension [Unknown]
  - Off label use [Unknown]
